FAERS Safety Report 22140682 (Version 1)
Quarter: 2023Q1

REPORT INFORMATION
  Report Type: Spontaneous
  Country: US (occurrence: None)
  Receive Date: 20230324
  Receipt Date: 20230324
  Transmission Date: 20230418
  Serious: Yes (Life-Threatening, Other)
  Sender: FDA-Public Use
  Company Number: None

PATIENT
  Age: 59 Year
  Sex: Male
  Weight: 116.55 kg

DRUGS (1)
  1. INSULIN GLARGINE-YFGN [Suspect]
     Active Substance: INSULIN GLARGINE-YFGN
     Dates: start: 20230314

REACTIONS (28)
  - Poor quality sleep [None]
  - Anxiety [None]
  - Mood altered [None]
  - Headache [None]
  - Confusional state [None]
  - Depression [None]
  - Suicidal ideation [None]
  - Illness [None]
  - Discomfort [None]
  - Vision blurred [None]
  - Arthralgia [None]
  - Back pain [None]
  - Flank pain [None]
  - Decreased appetite [None]
  - Myalgia [None]
  - Myalgia [None]
  - Nausea [None]
  - Nervousness [None]
  - Hyperhidrosis [None]
  - Insomnia [None]
  - Fatigue [None]
  - Asthenia [None]
  - Vomiting [None]
  - Anger [None]
  - Product dispensing error [None]
  - Abnormal behaviour [None]
  - Drug intolerance [None]
  - Product substitution issue [None]

NARRATIVE: CASE EVENT DATE: 20230323
